FAERS Safety Report 4706777-X (Version None)
Quarter: 2005Q2

REPORT INFORMATION
  Report Type: 
  Country: None (occurrence: None)
  Receive Date: 20050629
  Receipt Date: 20050420
  Transmission Date: 20051028
  Serious: No
  Sender: FDA-Public Use
  Company Number: 05P-163-0298026-00

PATIENT
  Age: 64 Year
  Sex: Female
  Weight: 61.2356 kg

DRUGS (8)
  1. HUMIRA [Suspect]
     Indication: RHEUMATOID ARTHRITIS
     Dosage: SEE IMAGE
     Route: 058
     Dates: start: 20030101, end: 20050201
  2. HUMIRA [Suspect]
     Indication: RHEUMATOID ARTHRITIS
     Dosage: SEE IMAGE
     Route: 058
     Dates: start: 20050201
  3. METHOTREXATE [Concomitant]
  4. PROPACET 100 [Concomitant]
  5. MAGNESIUM [Concomitant]
  6. LORSARTAN POTASSIUM [Concomitant]
  7. ATENOLOL [Concomitant]
  8. AMLODIPINE BESYLATE [Concomitant]

REACTIONS (2)
  - INFLUENZA LIKE ILLNESS [None]
  - RASH [None]
